FAERS Safety Report 23937014 (Version 1)
Quarter: 2024Q2

REPORT INFORMATION
  Report Type: Spontaneous
  Country: US (occurrence: None)
  Receive Date: 20240603
  Receipt Date: 20240603
  Transmission Date: 20240716
  Serious: No
  Sender: FDA-Public Use
  Company Number: None

PATIENT
  Sex: Male

DRUGS (6)
  1. RUKOBIA [Suspect]
     Active Substance: FOSTEMSAVIR TROMETHAMINE
     Indication: HIV infection
     Dosage: ?600MG TWICE A DAY ORAL
     Route: 048
     Dates: start: 202211
  2. DARUNAVIR [Suspect]
     Active Substance: DARUNAVIR
     Indication: HIV infection
     Dosage: 600MG DAILY ORAL?
     Route: 048
     Dates: start: 202405
  3. ISENTRESS [Concomitant]
  4. BIKTARVY [Concomitant]
  5. ERTRAVIRINE [Concomitant]
  6. MYTESI DR [Concomitant]

REACTIONS (1)
  - Emergency care [None]
